FAERS Safety Report 7157392 (Version 7)
Quarter: 2014Q1

REPORT INFORMATION
  Report Type: Spontaneous
  Country: AU (occurrence: AU)
  Receive Date: 20091023
  Receipt Date: 20140321
  Transmission Date: 20141002
  Serious: Yes (Hospitalization, Other)
  Sender: FDA-Public Use
  Company Number: PHHY2009AU45356

PATIENT
  Sex: Male

DRUGS (13)
  1. STALEVO [Suspect]
     Indication: PARKINSON^S DISEASE
     Dosage: 300 MG- 400 MG PER DAY
  2. STALEVO [Suspect]
     Dosage: 900 MG, PER DAY (6 DIVIDED DOSES)
  3. STALEVO [Suspect]
     Dosage: 4 DF, (100/ 25/200 FOUR TIMES A DAY)
     Dates: start: 2009
  4. STALEVO [Suspect]
     Dosage: 200/50/200
  5. STALEVO [Suspect]
     Dosage: 200/50/200 FIVE TIMES DAILY
     Dates: start: 2011
  6. STALEVO [Suspect]
     Dosage: 150/37.5/200, FIVE TIMES A DAY
  7. STALEVO [Suspect]
     Dosage: 150 MG, Q4H
  8. STALEVO [Suspect]
     Dosage: 1 DF, QID (150/37.5/200 FOUR TIMES A DAY)
  9. STALEVO [Suspect]
     Dosage: 1 DF, (7 TO 8 TIMES A DAY)
  10. STALEVO [Suspect]
     Dosage: 1 DF, 6 TIMES A DAY (125/31.25/200 6 TIMES A DAY)
  11. SINEMET [Suspect]
     Dosage: UNK UKN, UNK
  12. EFEXOR [Concomitant]
     Indication: DEPRESSION
     Dosage: UNK UKN, UNK
  13. EFEXOR [Concomitant]
     Indication: DYSPHORIA

REACTIONS (14)
  - Herpes zoster [Not Recovered/Not Resolved]
  - Pain [Not Recovered/Not Resolved]
  - Myocardial infarction [Unknown]
  - Depression [Not Recovered/Not Resolved]
  - Muscle rigidity [Recovering/Resolving]
  - Muscle twitching [Not Recovered/Not Resolved]
  - Hypokinesia [Unknown]
  - Nightmare [Not Recovered/Not Resolved]
  - Tremor [Unknown]
  - Agitation [Not Recovered/Not Resolved]
  - Anxiety [Not Recovered/Not Resolved]
  - Insomnia [Not Recovered/Not Resolved]
  - Drug effect decreased [Not Recovered/Not Resolved]
  - Overdose [Unknown]
